FAERS Safety Report 16731677 (Version 2)
Quarter: 2019Q3

REPORT INFORMATION
  Report Type: Report from Study
  Country: CA (occurrence: CA)
  Receive Date: 20190822
  Receipt Date: 20190920
  Transmission Date: 20191005
  Serious: Yes (Other)
  Sender: FDA-Public Use
  Company Number: CA-JNJFOC-20190743707

PATIENT
  Age: 50 Year
  Sex: Female
  Weight: 64.6 kg

DRUGS (2)
  1. REMICADE [Suspect]
     Active Substance: INFLIXIMAB
     Indication: CROHN^S DISEASE
     Dosage: STRENGTH = 100 MG
     Route: 042
  2. IRON [Concomitant]
     Active Substance: IRON

REACTIONS (5)
  - Abdominal pain [Unknown]
  - Paraesthesia [Not Recovered/Not Resolved]
  - Pneumonia [Recovering/Resolving]
  - Neoplasm skin [Recovering/Resolving]
  - Arthritis [Unknown]

NARRATIVE: CASE EVENT DATE: 20190813
